FAERS Safety Report 17259920 (Version 1)
Quarter: 2020Q1

REPORT INFORMATION
  Report Type: Report from Study
  Country: US (occurrence: US)
  Receive Date: 20200111
  Receipt Date: 20200111
  Transmission Date: 20200409
  Serious: Yes (Life-Threatening, Hospitalization, Disabling, Other)
  Sender: FDA-Public Use
  Company Number: US-AUROBINDO-AUR-APL-2020-002335

PATIENT

DRUGS (1)
  1. MELPHALAN INJECTION [Suspect]
     Active Substance: MELPHALAN
     Indication: MALIGNANT MELANOMA
     Dosage: 1 MILLIGRAM/KILOGRAM/BODYWEIGHT CIRCULATED FOR 90 MINUTES
     Route: 065

REACTIONS (3)
  - Musculoskeletal toxicity [Unknown]
  - Limb amputation [Unknown]
  - Off label use [Unknown]
